FAERS Safety Report 13564726 (Version 1)
Quarter: 2017Q2

REPORT INFORMATION
  Report Type: Spontaneous
  Country: US (occurrence: US)
  Receive Date: 20170519
  Receipt Date: 20170519
  Transmission Date: 20170830
  Serious: Yes (Death)
  Sender: FDA-Public Use
  Company Number: US-ASTELLAS-2017US019880

PATIENT
  Age: 77 Year
  Sex: Male

DRUGS (1)
  1. PROGRAF [Suspect]
     Active Substance: TACROLIMUS\TACROLIMUS ANHYDROUS
     Indication: RENAL TRANSPLANT
     Dosage: 2.5 MG (1.5 MG IN MORNING AND 1 MG IN EVENING), ONCE DAILY
     Route: 048
     Dates: start: 20150824

REACTIONS (1)
  - Death [Fatal]
